FAERS Safety Report 13312269 (Version 1)
Quarter: 2017Q1

REPORT INFORMATION
  Report Type: Spontaneous
  Country: US (occurrence: US)
  Receive Date: 20170309
  Receipt Date: 20170309
  Transmission Date: 20170428
  Serious: Yes (Life-Threatening, Hospitalization, Other)
  Sender: FDA-Public Use
  Company Number: None

PATIENT
  Age: 53 Year
  Sex: Male
  Weight: 122.1 kg

DRUGS (1)
  1. PIPERACILLIN/TAZOBACTAM [Suspect]
     Active Substance: PIPERACILLIN SODIUM\TAZOBACTAM SODIUM
     Route: 042
     Dates: start: 20170211, end: 20170212

REACTIONS (10)
  - Pancytopenia [None]
  - Acute myeloid leukaemia [None]
  - Fatigue [None]
  - Rash [None]
  - Acute kidney injury [None]
  - Decreased appetite [None]
  - Atrial flutter [None]
  - Night sweats [None]
  - Abnormal loss of weight [None]
  - Febrile neutropenia [None]

NARRATIVE: CASE EVENT DATE: 20170228
